FAERS Safety Report 5164296-3 (Version None)
Quarter: 2006Q4

REPORT INFORMATION
  Report Type: 
  Country: None (occurrence: None)
  Receive Date: 20061129
  Receipt Date: 20061129
  Transmission Date: 20070319
  Serious: No
  Sender: FDA-Public Use
  Company Number: None

PATIENT
  Age: 49 Year
  Sex: Female
  Weight: 81.6475 kg

DRUGS (3)
  1. ZICAM INTENSE SIN REL NAS DECONG OXYMETAZOLINE HCL 0.05% [Suspect]
     Indication: NASOPHARYNGITIS
     Dosage: ONE SPRAY PER NOSTRIL Q 12 HRS NASAL
     Route: 045
     Dates: start: 20060801, end: 20060808
  2. ZICAM INTENSE SIN REL NAS DECONG OXYMETAZOLINE HCL 0.05% [Suspect]
     Indication: SINUS CONGESTION
     Dosage: ONE SPRAY PER NOSTRIL Q 12 HRS NASAL
     Route: 045
     Dates: start: 20060801, end: 20060808
  3. ZICAM LIQUID NASAL GEL ZINCUM GLUCONICUM 2X MATRIXX INITIATIVES, INC. [Suspect]
     Indication: SINUS CONGESTION
     Dosage: ONE PUMP PER NOSTRIL Q 4 HRS NASAL
     Route: 045
     Dates: start: 20060801, end: 20060803

REACTIONS (3)
  - ANOSMIA [None]
  - APPLICATION SITE IRRITATION [None]
  - PHARMACEUTICAL PRODUCT COMPLAINT [None]
